FAERS Safety Report 8779651 (Version 1)
Quarter: 2012Q4

REPORT INFORMATION
  Report Type: 
  Country: US (occurrence: US)
  Receive Date: 20120912
  Receipt Date: 20120912
  Transmission Date: 20130627
  Serious: Yes (Other)
  Sender: FDA-Public Use
  Company Number: US-TEVA-348504USA

PATIENT
  Sex: Female
  Weight: 47.67 kg

DRUGS (2)
  1. QNASL [Suspect]
     Indication: RHINITIS SEASONAL
     Dosage: 160 mcg
     Dates: start: 201206
  2. QNASL [Suspect]
     Indication: RHINITIS PERENNIAL

REACTIONS (10)
  - Pharyngeal oedema [Not Recovered/Not Resolved]
  - Headache [Not Recovered/Not Resolved]
  - Eye swelling [Not Recovered/Not Resolved]
  - Swelling face [Not Recovered/Not Resolved]
  - Epistaxis [Not Recovered/Not Resolved]
  - Drug ineffective [Not Recovered/Not Resolved]
  - Rhinitis [Not Recovered/Not Resolved]
  - Dizziness [Not Recovered/Not Resolved]
  - Visual acuity reduced [Not Recovered/Not Resolved]
  - Lymphadenopathy [Not Recovered/Not Resolved]
